FAERS Safety Report 11922340 (Version 1)
Quarter: 2016Q1

REPORT INFORMATION
  Report Type: Report from Study
  Country: US (occurrence: US)
  Receive Date: 20160115
  Receipt Date: 20160115
  Transmission Date: 20160526
  Serious: Yes (Other)
  Sender: FDA-Public Use
  Company Number: PHEH2016US001013

PATIENT
  Sex: Female
  Weight: 74.83 kg

DRUGS (1)
  1. GILENYA [Suspect]
     Active Substance: FINGOLIMOD HYDROCHLORIDE
     Indication: MULTIPLE SCLEROSIS
     Dosage: 0.5 MG, QD
     Route: 048
     Dates: start: 20150209

REACTIONS (7)
  - Glaucoma [Not Recovered/Not Resolved]
  - Migraine [Unknown]
  - Weight decreased [Unknown]
  - Fatigue [Recovering/Resolving]
  - Food poisoning [Recovering/Resolving]
  - Intraocular pressure increased [Unknown]
  - Malaise [Unknown]
